FAERS Safety Report 14283332 (Version 1)
Quarter: 2017Q4

REPORT INFORMATION
  Report Type: Spontaneous
  Country: US (occurrence: US)
  Receive Date: 20171213
  Receipt Date: 20171213
  Transmission Date: 20180321
  Serious: No
  Sender: FDA-Public Use
  Company Number: US-PRINSTON PHARMACEUTICAL INC.-2017PRN00532

PATIENT
  Sex: Female

DRUGS (4)
  1. ESCITALOPRAM [Suspect]
     Active Substance: ESCITALOPRAM OXALATE
     Dosage: UNK
     Dates: end: 201711
  2. TEMAZEPAM. [Concomitant]
     Active Substance: TEMAZEPAM
  3. FONDAPARINUX SODIUM. [Concomitant]
     Active Substance: FONDAPARINUX SODIUM
     Dosage: UNK, 1X/DAY
     Route: 058
     Dates: start: 20170923
  4. LISINOPRIL. [Concomitant]
     Active Substance: LISINOPRIL

REACTIONS (1)
  - Diarrhoea [Unknown]
